FAERS Safety Report 16316387 (Version 3)
Quarter: 2019Q3

REPORT INFORMATION
  Report Type: Spontaneous
  Country: US (occurrence: US)
  Receive Date: 20190515
  Receipt Date: 20190729
  Transmission Date: 20191004
  Serious: No
  Sender: FDA-Public Use
  Company Number: US-PFIZER INC-2019202175

PATIENT
  Age: 67 Year
  Sex: Female
  Weight: 58.97 kg

DRUGS (5)
  1. PREMARIN [Suspect]
     Active Substance: ESTROGENS, CONJUGATED
     Indication: BLADDER DISORDER
  2. PREMARIN [Suspect]
     Active Substance: ESTROGENS, CONJUGATED
     Indication: MICTURITION URGENCY
     Dosage: 0.25 MG, UNK
     Route: 067
     Dates: start: 2017
  3. TOVIAZ [Concomitant]
     Active Substance: FESOTERODINE FUMARATE
     Indication: MICTURITION URGENCY
     Dosage: UNK
  4. PREMARIN [Suspect]
     Active Substance: ESTROGENS, CONJUGATED
     Indication: URINARY INCONTINENCE
  5. TOVIAZ [Concomitant]
     Active Substance: FESOTERODINE FUMARATE
     Indication: URINARY INCONTINENCE

REACTIONS (4)
  - Drug ineffective for unapproved indication [Unknown]
  - Body height decreased [Unknown]
  - Intentional product misuse [Unknown]
  - Off label use [Unknown]
